FAERS Safety Report 7645356-1 (Version None)
Quarter: 2011Q3

REPORT INFORMATION
  Report Type: 
  Country: None (occurrence: None)
  Receive Date: 20110729
  Receipt Date: 20110722
  Transmission Date: 20111222
  Serious: Yes (Hospitalization)
  Sender: FDA-Public Use
  Company Number: FR-EISAI INC-E2080-00302-SPO-FR

PATIENT
  Age: 24 Year
  Sex: Female
  Weight: 75 kg

DRUGS (6)
  1. DEPAKENE [Concomitant]
     Indication: EPILEPSY
     Route: 048
     Dates: start: 20050101, end: 20050101
  2. DEPAKENE [Concomitant]
     Route: 048
     Dates: start: 20050101
  3. LAMICTAL [Concomitant]
     Indication: EPILEPSY
     Route: 048
     Dates: start: 20050101
  4. INOVELON [Suspect]
     Indication: LENNOX-GASTAUT SYNDROME
     Dosage: UNKNOWN
     Route: 048
     Dates: start: 20100602, end: 20100622
  5. AUGMENTIN '125' [Concomitant]
     Dosage: UNKNOWN
     Dates: start: 20100615
  6. KEPPRA [Concomitant]
     Indication: EPILEPSY
     Dosage: UNKNOWN
     Route: 048
     Dates: start: 20050101

REACTIONS (3)
  - EOSINOPHIL COUNT INCREASED [None]
  - DRUG ERUPTION [None]
  - HEPATIC ENZYME INCREASED [None]
